FAERS Safety Report 25217564 (Version 3)
Quarter: 2025Q2

REPORT INFORMATION
  Report Type: Spontaneous
  Country: US (occurrence: US)
  Receive Date: 20250420
  Receipt Date: 20250526
  Transmission Date: 20250717
  Serious: No
  Sender: SANOFI AVENTIS
  Company Number: US-SA-2025SA111530

PATIENT
  Age: 61 Year
  Sex: Female

DRUGS (1)
  1. KEVZARA [Suspect]
     Active Substance: SARILUMAB
     Indication: Polymyalgia rheumatica
     Dosage: 200 MG, QOW
     Route: 058
     Dates: start: 20250403

REACTIONS (9)
  - Inflammation [Unknown]
  - Arthralgia [Unknown]
  - Injection site bruising [Unknown]
  - Red blood cell count abnormal [Unknown]
  - Pain in extremity [Unknown]
  - Back pain [Unknown]
  - Panic reaction [Unknown]
  - Injection site induration [Not Recovered/Not Resolved]
  - Injection site swelling [Not Recovered/Not Resolved]

NARRATIVE: CASE EVENT DATE: 20250101
